FAERS Safety Report 8317663-0 (Version None)
Quarter: 2012Q2

REPORT INFORMATION
  Report Type: 
  Country: None (occurrence: None)
  Receive Date: 20120427
  Receipt Date: 20120417
  Transmission Date: 20120825
  Serious: Yes (Other)
  Sender: FDA-Public Use
  Company Number: CA-BRISTOL-MYERS SQUIBB COMPANY-16536534

PATIENT
  Age: 41 Year
  Sex: Male

DRUGS (12)
  1. EFAVIRENZ [Interacting]
     Indication: HIV INFECTION
     Dates: start: 19990101
  2. LAMIVUDINE [Suspect]
     Indication: HIV INFECTION
     Dates: start: 19990101
  3. CALCIUM [Concomitant]
  4. MAGNESIUM [Concomitant]
  5. FLAXSEED OIL [Concomitant]
  6. VITAMIN D [Concomitant]
  7. LOVAZA [Concomitant]
  8. HORSE-CHESTNUT [Concomitant]
     Indication: HAEMORRHOIDS
  9. ZIDOVUDINE [Suspect]
     Indication: HIV INFECTION
  10. MULTI-VITAMIN [Concomitant]
  11. GINKGO BILOBA [Interacting]
  12. RUTIN [Concomitant]

REACTIONS (2)
  - DRUG INTERACTION [None]
  - VIRAL LOAD INCREASED [None]
